FAERS Safety Report 4423668-2 (Version None)
Quarter: 2004Q3

REPORT INFORMATION
  Report Type: 
  Country: None (occurrence: None)
  Receive Date: 20040714
  Receipt Date: 20040511
  Transmission Date: 20050211
  Serious: Yes (Other)
  Sender: FDA-Public Use
  Company Number: HQWYE931617MAY04

PATIENT
  Age: 10 Year
  Sex: Male

DRUGS (1)
  1. ALAVERT [Suspect]
     Indication: HYPERSENSITIVITY
     Dosage: 1 TAB, ORAL
     Route: 048
     Dates: start: 20040511, end: 20040511

REACTIONS (2)
  - GLOSSODYNIA [None]
  - SALIVARY HYPERSECRETION [None]
